FAERS Safety Report 5299523-5 (Version None)
Quarter: 2007Q2

REPORT INFORMATION
  Report Type: 
  Country: None (occurrence: None)
  Receive Date: 20070410
  Receipt Date: 20070405
  Transmission Date: 20071010
  Serious: Yes (Congenital Anomaly)
  Sender: FDA-Public Use
  Company Number: A0634381A

PATIENT
  Sex: Male
  Weight: 2.3133 kg

DRUGS (3)
  1. COMBIVIR [Suspect]
     Indication: HIV INFECTION
     Dosage: UNK / UNK / TRANSPLACENTARY
     Route: 064
     Dates: start: 20060810
  2. NELFINAVIR MESYLATE [Concomitant]
  3. CO-TRIMOXAZOLE [Concomitant]

REACTIONS (5)
  - CONSTIPATION [None]
  - DRUG EXPOSURE DURING PREGNANCY [None]
  - HYDROURETER [None]
  - KIDNEY MALFORMATION [None]
  - NEPHROTIC SYNDROME [None]
